FAERS Safety Report 11071234 (Version 2)
Quarter: 2015Q3

REPORT INFORMATION
  Report Type: Report from Study
  Country: US (occurrence: US)
  Receive Date: 20150428
  Receipt Date: 20150817
  Transmission Date: 20151125
  Serious: Yes (Hospitalization, Other)
  Sender: FDA-Public Use
  Company Number: US-GILEAD-2015-0150527

PATIENT
  Age: 64 Year
  Sex: Male

DRUGS (15)
  1. METRONIDAZOLE. [Concomitant]
     Active Substance: METRONIDAZOLE
  2. ALLOPURINOL. [Concomitant]
     Active Substance: ALLOPURINOL
  3. AMBRISENTAN [Suspect]
     Active Substance: AMBRISENTAN
     Indication: PORTAL HYPERTENSION
  4. LEVOFLOXACIN. [Concomitant]
     Active Substance: LEVOFLOXACIN
  5. SILDENAFIL. [Concomitant]
     Active Substance: SILDENAFIL
  6. PERCOCET [Concomitant]
     Active Substance: ACETAMINOPHEN\OXYCODONE HYDROCHLORIDE
  7. AMBRISENTAN [Suspect]
     Active Substance: AMBRISENTAN
     Indication: PULMONARY HYPERTENSION
     Dosage: 10 MG, QD
     Route: 065
     Dates: start: 20120705
  8. ARANESP [Concomitant]
     Active Substance: DARBEPOETIN ALFA
  9. PANTOPRAZOLE [Concomitant]
     Active Substance: PANTOPRAZOLE SODIUM
  10. CALCITRIOL. [Concomitant]
     Active Substance: CALCITRIOL
  11. METOPROLOL [Concomitant]
     Active Substance: METOPROLOL
  12. XIFAXAN [Concomitant]
     Active Substance: RIFAXIMIN
  13. NORVASC [Concomitant]
     Active Substance: AMLODIPINE BESYLATE
  14. HYDROXYZINE [Concomitant]
     Active Substance: HYDROXYZINE\HYDROXYZINE HYDROCHLORIDE
  15. PREDNISONE. [Concomitant]
     Active Substance: PREDNISONE

REACTIONS (1)
  - Renal failure [Unknown]
